FAERS Safety Report 14248706 (Version 7)
Quarter: 2018Q2

REPORT INFORMATION
  Report Type: Report from Study
  Country: DE (occurrence: DE)
  Receive Date: 20171204
  Receipt Date: 20180620
  Transmission Date: 20180711
  Serious: Yes (Hospitalization)
  Sender: FDA-Public Use
  Company Number: DE-PFIZER INC-2017517184

PATIENT
  Age: 60 Year
  Sex: Female
  Weight: 93 kg

DRUGS (13)
  1. VARGATEF [Suspect]
     Active Substance: NINTEDANIB
     Dosage: 400 MG, 1X/DAY; CUMULATIVE DOSE 800 MG
     Route: 048
     Dates: start: 20150319
  2. ACETYLCYSTEINE. [Concomitant]
     Active Substance: ACETYLCYSTEINE
     Indication: ATRIAL FIBRILLATION
     Dosage: 1800 MG (600 MG, 3 DF), 1X/DAY
     Route: 065
  3. VARGATEF [Suspect]
     Active Substance: NINTEDANIB
     Indication: LUNG ADENOCARCINOMA
     Dosage: 400 MG, 1X/DAY/ DAILY DOSE: 400 MG MILLIGRAM EVERY DAY (CUMULATIVE 800 MG)
     Route: 048
     Dates: start: 20150318, end: 20150419
  4. NOVAMIN [Concomitant]
     Indication: PROPHYLAXIS
     Dosage: 500 MG, 1X/DAY
     Route: 048
     Dates: start: 20140708
  5. ACC /00082801/ [Concomitant]
     Active Substance: ACETYLCYSTEINE
     Indication: ATRIAL FIBRILLATION
     Dosage: 600 MG (600 MG, 1 DF), 1X/DAY
  6. DOCETAXEL. [Suspect]
     Active Substance: DOCETAXEL
     Dosage: 100 MG/M2, DAILY; 100MG/M2 BSA; DAILY DOSE: 192MG
     Route: 042
     Dates: start: 20150318, end: 20150408
  7. BISOPROLOL [Concomitant]
     Active Substance: BISOPROLOL
     Dosage: 2 DF, 1X/DAY
  8. DECORTIN [Concomitant]
     Active Substance: PREDNISONE
     Indication: PULMONARY FIBROSIS
     Dosage: UNK
     Route: 065
  9. TROMCARDIN [Concomitant]
     Active Substance: MAGNESIUM ASPARTATE\POTASSIUM ASPARTATE
     Indication: ATRIAL FIBRILLATION
     Dosage: UNK
     Route: 065
  10. VARGATEF [Suspect]
     Active Substance: NINTEDANIB
     Dosage: 400 MG, 1X/DAY CUMULATIVE: 800 MG
     Route: 048
     Dates: end: 20150630
  11. ACC /00082801/ [Concomitant]
     Active Substance: ACETYLCYSTEINE
     Dosage: 3 DF, 1X/DAY
  12. DOCETAXEL. [Suspect]
     Active Substance: DOCETAXEL
     Indication: LUNG ADENOCARCINOMA
     Dosage: 100 MG/M2, DAILY, BSA
     Route: 042
  13. BISOPROLOL [Concomitant]
     Active Substance: BISOPROLOL
     Indication: HYPERTENSION
     Dosage: 1 DF, 1X/DAY
     Route: 065

REACTIONS (6)
  - Large intestine perforation [Recovered/Resolved]
  - Stomatitis [Recovered/Resolved]
  - Diverticulitis [Recovered/Resolved with Sequelae]
  - Oedema peripheral [Unknown]
  - Diarrhoea [Recovered/Resolved]
  - Abdominal pain [Recovered/Resolved]

NARRATIVE: CASE EVENT DATE: 20150320
